FAERS Safety Report 13155043 (Version 2)
Quarter: 2019Q4

REPORT INFORMATION
  Report Type: Spontaneous
  Country: US (occurrence: US)
  Receive Date: 20170126
  Receipt Date: 20191021
  Transmission Date: 20200122
  Serious: Yes (Hospitalization, Other)
  Sender: FDA-Public Use
  Company Number: US-PFIZER INC-2017036369

PATIENT
  Age: 62 Year
  Sex: Male

DRUGS (2)
  1. LEVITRA [Suspect]
     Active Substance: VARDENAFIL HYDROCHLORIDE
     Indication: ERECTILE DYSFUNCTION
     Dosage: 20 MG, UNK
     Dates: start: 20111003, end: 20111101
  2. VIAGRA [Suspect]
     Active Substance: SILDENAFIL CITRATE
     Indication: ERECTILE DYSFUNCTION
     Dosage: 2 PILLS A MONTH (1/2 PILL PER WEEK)
     Route: 048
     Dates: start: 20111221, end: 20151218

REACTIONS (2)
  - Malignant melanoma stage III [Unknown]
  - Depression [Unknown]

NARRATIVE: CASE EVENT DATE: 20160726
